FAERS Safety Report 4877209-6 (Version None)
Quarter: 2005Q4

REPORT INFORMATION
  Report Type: 
  Country: None (occurrence: None)
  Receive Date: 20051206
  Receipt Date: 20050927
  Transmission Date: 20060501
  Serious: No
  Sender: FDA-Public Use
  Company Number: USA0509109316

PATIENT
  Age: 65 Year
  Sex: Female
  Weight: 87 kg

DRUGS (9)
  1. CYMBALTA [Suspect]
     Indication: NEUROPATHY
     Dosage: 30 MG DAY
     Dates: start: 20050823, end: 20050829
  2. NORVASC [Concomitant]
  3. ATENOLOL [Concomitant]
  4. PROTONIX [Concomitant]
  5. ZYRTEC [Concomitant]
  6. METFORMIN [Concomitant]
  7. AMARYL [Concomitant]
  8. LIPITOR [Concomitant]
  9. POTASSIUM [Concomitant]

REACTIONS (2)
  - BREAST PAIN [None]
  - HERPES ZOSTER [None]
